FAERS Safety Report 7500237-9 (Version None)
Quarter: 2011Q2

REPORT INFORMATION
  Report Type: 
  Country: None (occurrence: None)
  Receive Date: 20110524
  Receipt Date: 20100419
  Transmission Date: 20111010
  Serious: No
  Sender: FDA-Public Use
  Company Number: US-NOVEN-ALL1-2010-02318

PATIENT

DRUGS (13)
  1. CARAFATE [Concomitant]
     Dosage: UNK, 1X/DAY:QD, TWO TEASPOONS
     Route: 048
     Dates: start: 19910101
  2. PLAQUENIL [Concomitant]
     Dosage: 200 MG, 2X/DAY:BID
     Route: 048
     Dates: start: 20000101
  3. DAYTRANA [Suspect]
     Dosage: 10 MG, 1X/DAY:QD
     Route: 062
     Dates: start: 20090101
  4. ACIPHEX [Concomitant]
     Dosage: 20 MG, 2X/DAY:BID
     Route: 048
     Dates: start: 20000101
  5. ESTROGEN NOS [Concomitant]
     Dosage: 1.5 MG, OTHER (TWO TIMES PER WEEK)
     Route: 067
     Dates: start: 19910101
  6. ZYRTEC-D 12 HOUR [Concomitant]
     Dosage: UNK, 1X/DAY:QD (ONE TABLET)
     Route: 048
     Dates: start: 20050101
  7. ESTROGEN NOS [Concomitant]
  8. CLONAZEPAM [Concomitant]
     Dosage: UNK MG, 1X/DAY:QD (1/2 OF A 0.5 MG)
     Route: 048
     Dates: start: 20000101
  9. DAYTRANA [Suspect]
     Dosage: 10 MG, 1X/DAY:QD
     Route: 062
     Dates: start: 20090101
  10. FIORICET W/ CODEINE [Concomitant]
     Dosage: UNK MG, 3X/DAY:TID
     Route: 048
  11. PHENERGAN                          /00033001/ [Concomitant]
     Dosage: 25 MG, 2X/DAY:BID
     Route: 048
     Dates: start: 20000101
  12. REMICADE [Concomitant]
     Dosage: UNK, OTHER (EVERY SIX WEEKS)
     Route: 042
     Dates: start: 20080101
  13. COMPAZINE [Concomitant]
     Dosage: 10 MG, 2X/DAY:BID
     Route: 048
     Dates: start: 20050101

REACTIONS (6)
  - OFF LABEL USE [None]
  - APPLICATION SITE RASH [None]
  - APPLICATION SITE PAPULES [None]
  - APPLICATION SITE ERYTHEMA [None]
  - APPLICATION SITE PRURITUS [None]
  - PRODUCT QUALITY ISSUE [None]
